FAERS Safety Report 6689201-X (Version None)
Quarter: 2010Q2

REPORT INFORMATION
  Report Type: 
  Country: None (occurrence: None)
  Receive Date: 20100414
  Receipt Date: 20100401
  Transmission Date: 20101027
  Serious: Yes (Hospitalization)
  Sender: FDA-Public Use
  Company Number: CLOF-10331

PATIENT
  Age: 5 Year
  Sex: Male
  Weight: 19.2 kg

DRUGS (10)
  1. CLOFARABINE [Suspect]
     Indication: ACUTE MYELOID LEUKAEMIA
     Dosage: 15 G, QDX5, INTRAVENOUS
     Route: 042
     Dates: start: 20060908, end: 20060912
  2. ETOPOSIDE [Suspect]
     Indication: ACUTE MYELOID LEUKAEMIA
     Dosage: 76 MG, QDX5, INTRAVENOUS
     Route: 042
     Dates: start: 20060908, end: 20060912
  3. CYCLOPHOSPHAMIDE [Suspect]
     Indication: ACUTE MYELOID LEUKAEMIA
     Dosage: 335 MG, QDX5, INTRAVENOUS
     Route: 042
     Dates: start: 20060908, end: 20060912
  4. NEUPOGEN [Concomitant]
  5. BENADRYL [Concomitant]
  6. . [Concomitant]
  7. TYLENOL (PARACETAMOL) [Concomitant]
  8. BACTRIM [Concomitant]
  9. KYTRIL [Concomitant]
  10. ATIVAN (LORAZEMPAM) [Concomitant]

REACTIONS (6)
  - EAR PAIN [None]
  - FEBRILE NEUTROPENIA [None]
  - OCCULT BLOOD POSITIVE [None]
  - RECTAL FISSURE [None]
  - VOMITING [None]
  - WHITE BLOOD CELL COUNT DECREASED [None]
